FAERS Safety Report 7082924-2 (Version None)
Quarter: 2010Q4

REPORT INFORMATION
  Report Type: 
  Country: None (occurrence: None)
  Receive Date: 20101104
  Receipt Date: 20101028
  Transmission Date: 20110411
  Serious: Yes (Death, Hospitalization)
  Sender: FDA-Public Use
  Company Number: PHHY2010JP58014

PATIENT
  Sex: Female
  Weight: 52 kg

DRUGS (19)
  1. DIOVAN [Suspect]
     Indication: HYPERTENSION
     Dosage: 80 MG, UNK
     Route: 048
     Dates: start: 20031205
  2. METFORMIN HCL [Suspect]
     Indication: DIABETES MELLITUS
     Dosage: 500 MG, UNK
     Route: 048
     Dates: start: 20030801, end: 20100121
  3. AMLODIPINE [Concomitant]
     Dosage: 5 MG, UNK
     Route: 048
  4. SIMVASTATIN [Concomitant]
     Dosage: 5 MG, UNK
     Route: 048
  5. TACROLIMUS [Concomitant]
     Dosage: 1.5 MG, UNK
     Route: 048
  6. TOCOPHERYL NICOTINATE [Concomitant]
     Dosage: 300 MG, UNK
     Route: 048
  7. MECOBALAMIN [Concomitant]
     Dosage: 1500 UG, UNK
  8. NORVASC [Concomitant]
     Indication: HYPERTENSION
     Dosage: 5 MG, UNK
     Route: 048
  9. SIMVASTATIN [Concomitant]
     Indication: HYPERLIPIDAEMIA
     Dosage: 5 MG, UNK
     Route: 048
  10. 8-HOUR BAYER [Concomitant]
     Indication: ARTERIOSCLEROSIS
     Dosage: 100 MG, UNK
     Route: 048
     Dates: start: 20060623
  11. INFREE [Concomitant]
     Indication: RHEUMATOID ARTHRITIS
     Dosage: 400 MG, UNK
     Route: 048
  12. PROGRAF [Concomitant]
     Indication: RHEUMATOID ARTHRITIS
     Dosage: 1 MG, UNK
     Route: 048
     Dates: start: 20040818
  13. URINORM [Concomitant]
     Indication: HYPERURICAEMIA
     Dosage: 50 MG, UNK
     Route: 048
     Dates: start: 20040812
  14. LENDORMIN [Concomitant]
     Indication: INSOMNIA
     Dosage: 0.25 MG, UNK
     Route: 048
     Dates: start: 20090731
  15. KAKKON-TO [Concomitant]
     Dosage: 7.5 G, UNK
     Route: 048
  16. GASTROM [Concomitant]
     Indication: GASTRITIS
     Dosage: 3 G, UNK
     Route: 048
  17. JUVELA NICOTINATE [Concomitant]
     Indication: NEUROPATHY PERIPHERAL
     Dosage: 300 MG, UNK
     Route: 048
     Dates: start: 20090618
  18. CYANOCOBALAMIN [Concomitant]
     Indication: NEUROPATHY PERIPHERAL
     Dosage: 1500 UG, UNK
     Route: 048
     Dates: start: 20090618
  19. BIFLAMIN [Concomitant]
     Indication: DIARRHOEA
     Dosage: 6 G, UNK
     Route: 048
     Dates: start: 20100121, end: 20100122

REACTIONS (16)
  - ABNORMAL FAECES [None]
  - COLD SWEAT [None]
  - CONFUSIONAL STATE [None]
  - DISORIENTATION [None]
  - DYSARTHRIA [None]
  - DYSSTASIA [None]
  - FEELING ABNORMAL [None]
  - GRIP STRENGTH DECREASED [None]
  - HYPERHIDROSIS [None]
  - HYPOGLYCAEMIA [None]
  - IRRITABILITY [None]
  - MOOD ALTERED [None]
  - PLEURAL EFFUSION [None]
  - PLEURISY [None]
  - RHEUMATOID ARTHRITIS [None]
  - SLUGGISHNESS [None]
